FAERS Safety Report 8171395-0 (Version None)
Quarter: 2012Q1

REPORT INFORMATION
  Report Type: 
  Country: None (occurrence: None)
  Receive Date: 20120228
  Receipt Date: 20120213
  Transmission Date: 20120608
  Serious: Yes (Hospitalization)
  Sender: FDA-Public Use
  Company Number: IT-WATSON-2012-03095

PATIENT
  Age: 51 Year
  Sex: Male

DRUGS (3)
  1. RITUXIMAB [Suspect]
  2. PREDNISOLONE [Suspect]
     Indication: MULTIPLE MYELOMA
  3. PREDNISOLONE [Suspect]
     Indication: IMMUNOSUPPRESSION
     Route: 065

REACTIONS (2)
  - ALANINE AMINOTRANSFERASE INCREASED [None]
  - HEPATITIS B [None]
